FAERS Safety Report 13511686 (Version 2)
Quarter: 2017Q2

REPORT INFORMATION
  Report Type: Spontaneous
  Country: US (occurrence: US)
  Receive Date: 20170504
  Receipt Date: 20170509
  Transmission Date: 20170830
  Serious: Yes (Hospitalization)
  Sender: FDA-Public Use
  Company Number: US-CELGENEUS-USA-20170410663

PATIENT
  Sex: Female

DRUGS (1)
  1. THALOMID [Suspect]
     Active Substance: THALIDOMIDE
     Indication: MONOCLONAL GAMMOPATHY
     Dosage: 100 MILLIGRAM
     Route: 048
     Dates: start: 201703

REACTIONS (2)
  - Peripheral swelling [Unknown]
  - Cardiac valve disease [Unknown]

NARRATIVE: CASE EVENT DATE: 2017
